FAERS Safety Report 5468697-5 (Version None)
Quarter: 2007Q3

REPORT INFORMATION
  Report Type: 
  Country: None (occurrence: None)
  Receive Date: 20070926
  Receipt Date: 20070919
  Transmission Date: 20080115
  Serious: Yes (Hospitalization, Other)
  Sender: FDA-Public Use
  Company Number: JP-SANOFI-SYNTHELABO-F01200600632

PATIENT
  Sex: Female
  Weight: 52 kg

DRUGS (7)
  1. LEUCOVORIN CALCIUM [Suspect]
     Dosage: 154 MG INFUSION ON D1+2
     Route: 042
     Dates: start: 20051004, end: 20051005
  2. LEUCOVORIN CALCIUM [Suspect]
     Dosage: 154 MG INFUSION ON D1+2
     Route: 042
     Dates: start: 20051020, end: 20051021
  3. FLUOROURACIL [Suspect]
     Dosage: 616 MG IV BOLUS FOLLOWED BY 924 MG INFUSION ON D1+2
     Route: 042
     Dates: start: 20051004, end: 20051005
  4. FLUOROURACIL [Suspect]
     Dosage: 616 MG IV BOLUS FOLLOWED BY 924 MG INFUSION ON D1+2
     Route: 042
     Dates: start: 20051020, end: 20051021
  5. OXALIPLATIN [Suspect]
     Indication: RECTAL CANCER
     Route: 042
     Dates: start: 20051004, end: 20051004
  6. OXALIPLATIN [Suspect]
     Route: 042
     Dates: start: 20051020, end: 20051020
  7. SOLU-MEDROL [Concomitant]
     Indication: HYPERSENSITIVITY
     Route: 042
     Dates: start: 20060202, end: 20060202

REACTIONS (5)
  - DISSEMINATED INTRAVASCULAR COAGULATION [None]
  - HAEMOGLOBIN DECREASED [None]
  - LEUKOPENIA [None]
  - NEUTROPENIA [None]
  - THROMBOCYTOPENIA [None]
